FAERS Safety Report 4556990-X (Version None)
Quarter: 2005Q1

REPORT INFORMATION
  Report Type: 
  Country: None (occurrence: None)
  Receive Date: 20050118
  Receipt Date: 20050111
  Transmission Date: 20050727
  Serious: Yes (Death, Hospitalization)
  Sender: FDA-Public Use
  Company Number: 2005010780

PATIENT
  Age: 66 Year
  Sex: Female
  Weight: 49 kg

DRUGS (11)
  1. CAMPTOSAR [Suspect]
     Indication: COLON CANCER METASTATIC
     Dosage: 110 MG INTRAVENOUS
     Route: 042
     Dates: start: 20031202, end: 20040713
  2. FLUOROURACIL [Suspect]
     Indication: COLON CANCER METASTATIC
     Dosage: 2850 MG, INTRAVENOUS
     Route: 042
     Dates: start: 20031202, end: 20040713
  3. LEUCOVORIN CALCIUM [Suspect]
     Indication: COLON CANCER METASTATIC
     Dosage: 770 MG, INTRAVENOUS
     Route: 042
     Dates: start: 20031202, end: 20040713
  4. GRANISETRON HYDROCHLORIDE (GRANISETRON HYDROCHLORIDE) [Concomitant]
  5. ATROPINE [Concomitant]
  6. DEXAMETHASONE [Concomitant]
  7. VERAPAMIL HCL [Concomitant]
  8. ESOMEPRAZOLE (ESOMEPRAZOLE) [Concomitant]
  9. FUROSEMIDE [Concomitant]
  10. AMILORIDE HCL [Concomitant]
  11. DIPYRONE TAB [Concomitant]

REACTIONS (5)
  - CANDIDIASIS [None]
  - GENERAL PHYSICAL HEALTH DETERIORATION [None]
  - ILEUS [None]
  - OEDEMA [None]
  - PNEUMONIA [None]
